FAERS Safety Report 7851204 (Version 5)
Quarter: 2012Q4

REPORT INFORMATION
  Report Type: 
  Country: US (occurrence: US)
  Receive Date: 20110310
  Receipt Date: 20121217
  Transmission Date: 20130627
  Serious: Yes (Hospitalization)
  Sender: FDA-Public Use
  Company Number: US-ASTRAZENECA-2011SE11863

PATIENT
  Age: 29959 Day
  Sex: Female

DRUGS (1)
  1. CRESTOR [Suspect]
     Route: 048
     Dates: start: 200904

REACTIONS (6)
  - Aortic valve incompetence [Unknown]
  - Infection [Unknown]
  - Malaise [Unknown]
  - Thrombocytopenia [Unknown]
  - Abdominal discomfort [Unknown]
  - Headache [Unknown]
